FAERS Safety Report 21423802 (Version 1)
Quarter: 2022Q4

REPORT INFORMATION
  Report Type: Spontaneous
  Country: US (occurrence: US)
  Receive Date: 20221007
  Receipt Date: 20221007
  Transmission Date: 20230113
  Serious: No
  Sender: FDA-Public Use
  Company Number: US-BAYER-2022A138543

PATIENT
  Age: 82 Year
  Sex: Female

DRUGS (3)
  1. MIRALAX [Suspect]
     Active Substance: POLYETHYLENE GLYCOL 3350
     Indication: Gastrointestinal disorder
     Dosage: UNK, ONE IN THE MORNING AND ONE IN THE EVENING. SINCE THEN ONE IN A DAY.
     Route: 048
     Dates: start: 202210, end: 20221006
  2. LOSARTAN [Suspect]
     Active Substance: LOSARTAN
     Dosage: UNK
  3. AMLODIPINE [Suspect]
     Active Substance: AMLODIPINE BESYLATE
     Dosage: UNK

REACTIONS (2)
  - Urticaria [Not Recovered/Not Resolved]
  - Extra dose administered [None]

NARRATIVE: CASE EVENT DATE: 20221001
